FAERS Safety Report 24444025 (Version 2)
Quarter: 2024Q4

REPORT INFORMATION
  Report Type: Report from Study
  Country: US (occurrence: US)
  Receive Date: 20241016
  Receipt Date: 20241017
  Transmission Date: 20250115
  Serious: No
  Sender: ROCHE
  Company Number: US-ROCHE-2542215

PATIENT
  Age: 69 Year
  Sex: Female

DRUGS (18)
  1. RITUXAN [Suspect]
     Active Substance: RITUXIMAB
     Indication: Polyarteritis nodosa
     Dosage: DAY 1 AND DAY 15
     Route: 042
  2. RITUXAN [Suspect]
     Active Substance: RITUXIMAB
     Indication: Rheumatoid arthritis
  3. RITUXAN [Suspect]
     Active Substance: RITUXIMAB
     Indication: Cutaneous vasculitis
  4. RITUXAN [Suspect]
     Active Substance: RITUXIMAB
     Indication: Psoriatic arthropathy
  5. CELLCEPT [Suspect]
     Active Substance: MYCOPHENOLATE MOFETIL
     Indication: Product used for unknown indication
     Route: 048
  6. ALBUTEROL [Concomitant]
     Active Substance: ALBUTEROL
     Dosage: 90 MCG ACTUATION
  7. VITAMIN D3 [Concomitant]
     Active Substance: CHOLECALCIFEROL
     Dosage: 5000 UNITS
     Route: 048
  8. LEXAPRO [Concomitant]
     Active Substance: ESCITALOPRAM OXALATE
     Route: 048
  9. BIOTIN [Concomitant]
     Active Substance: BIOTIN
  10. OMEPRAZOLE [Concomitant]
     Active Substance: OMEPRAZOLE
     Route: 048
  11. TRESIBA [Concomitant]
     Active Substance: INSULIN DEGLUDEC
     Dosage: INSULINE PEN, 200 UNIT/ML
     Route: 058
  12. LOSARTAN [Concomitant]
     Active Substance: LOSARTAN
     Dosage: MORNING
     Route: 048
  13. JARDIANCE [Concomitant]
     Active Substance: EMPAGLIFLOZIN
     Dosage: MORNING
     Route: 048
  14. LINZESS [Concomitant]
     Active Substance: LINACLOTIDE
  15. COZAAR [Concomitant]
     Active Substance: LOSARTAN POTASSIUM
     Route: 048
  16. PREDNISONE [Concomitant]
     Active Substance: PREDNISONE
     Indication: Arthritis
  17. XANAX [Concomitant]
     Active Substance: ALPRAZOLAM
     Route: 048
  18. LASIX [Concomitant]
     Active Substance: FUROSEMIDE

REACTIONS (1)
  - Arthritis [Unknown]

NARRATIVE: CASE EVENT DATE: 20180501
